FAERS Safety Report 10064880 (Version 1)
Quarter: 2014Q1

REPORT INFORMATION
  Report Type: Spontaneous
  Country: US (occurrence: None)
  Receive Date: 20140328
  Receipt Date: 20140328
  Transmission Date: 20141002
  Serious: No
  Sender: FDA-Public Use
  Company Number: 1000053143

PATIENT
  Age: 64 Year
  Sex: Female

DRUGS (2)
  1. LINZESS [Suspect]
     Indication: IRRITABLE BOWEL SYNDROME
     Route: 048
     Dates: start: 20140108, end: 20140113
  2. LINZESS [Suspect]
     Route: 048
     Dates: start: 20140108, end: 20140113

REACTIONS (1)
  - Diarrhoea [None]
